FAERS Safety Report 4712079-8 (Version None)
Quarter: 2005Q3

REPORT INFORMATION
  Report Type: 
  Country: None (occurrence: None)
  Receive Date: 20050712
  Receipt Date: 20050207
  Transmission Date: 20060218
  Serious: Yes (Hospitalization)
  Sender: FDA-Public Use
  Company Number: CA-MERCK-0502CAN00066

PATIENT
  Age: 53 Year
  Sex: Male
  Weight: 84 kg

DRUGS (10)
  1. FLUOXETINE HCL [Concomitant]
     Indication: MALIGNANT MELANOMA
     Route: 065
     Dates: start: 20030201, end: 20041101
  2. VIOXX [Suspect]
     Indication: ARTHRITIS
     Route: 048
     Dates: start: 20020423, end: 20021201
  3. FOSINOPRIL SODIUM [Concomitant]
     Indication: HYPERTENSION
     Route: 048
     Dates: start: 19970822
  4. FOSINOPRIL SODIUM [Concomitant]
     Route: 065
     Dates: start: 19980101
  5. ATORVASTATIN CALCIUM [Concomitant]
     Indication: BLOOD CHOLESTEROL INCREASED
     Route: 048
     Dates: start: 19950101
  6. [THERAPY UNSPECIFIED] [Concomitant]
     Indication: HYPERTENSION
     Route: 065
     Dates: start: 19980101
  7. ACETAMINOPHEN AND CODEINE PHOSPHATE [Concomitant]
     Route: 065
  8. FLUOXETINE HYDROCHLORIDE [Concomitant]
     Indication: DEPRESSION
     Route: 065
     Dates: start: 19940101
  9. FLUOXETINE HYDROCHLORIDE [Concomitant]
     Route: 065
     Dates: start: 20030201, end: 20041101
  10. FLUOXETINE HYDROCHLORIDE [Concomitant]
     Route: 065
     Dates: start: 19940101

REACTIONS (6)
  - ACUTE MYOCARDIAL INFARCTION [None]
  - ANXIETY [None]
  - DEPRESSION [None]
  - MYOCARDIAL ISCHAEMIA [None]
  - SPINAL COLUMN STENOSIS [None]
  - VENTRICULAR DYSFUNCTION [None]
